FAERS Safety Report 6103660-2 (Version None)
Quarter: 2009Q1

REPORT INFORMATION
  Report Type: 
  Country: None (occurrence: None)
  Receive Date: 20090227
  Receipt Date: 20090219
  Transmission Date: 20090719
  Serious: Yes (Life-Threatening, Other)
  Sender: FDA-Public Use
  Company Number: 2008US001657

PATIENT
  Age: 63 Year
  Sex: Male

DRUGS (8)
  1. AMBISOME [Suspect]
     Indication: MUCORMYCOSIS
     Dosage: 200 MG, UID/QD; IV NOS; 400 MG, UID/QD, IV NOS
     Route: 042
     Dates: start: 20080501, end: 20080101
  2. AMBISOME [Suspect]
     Indication: MUCORMYCOSIS
     Dosage: 200 MG, UID/QD; IV NOS; 400 MG, UID/QD, IV NOS
     Route: 042
     Dates: start: 20080522
  3. MEROPEN (MEROPENEM TRIHYDRATE) [Concomitant]
  4. PREDONINE (PREDNISOLONE SODIUM SUCCINATE) [Concomitant]
  5. MUCODYNE (CARBOCISTEINE) [Concomitant]
  6. MUCOSTA (REBAMIPIDE) [Concomitant]
  7. MOBIX (MELOXICAM) [Concomitant]
  8. FOSAMAX [Concomitant]

REACTIONS (2)
  - HYPOKALAEMIA [None]
  - PLATELET COUNT DECREASED [None]
